FAERS Safety Report 17535046 (Version 1)
Quarter: 2020Q1

REPORT INFORMATION
  Report Type: Spontaneous
  Country: NL (occurrence: NL)
  Receive Date: 20200313
  Receipt Date: 20200313
  Transmission Date: 20200409
  Serious: Yes (Other)
  Sender: FDA-Public Use
  Company Number: NL-TEVA-2020-NL-1198975

PATIENT
  Sex: Male

DRUGS (1)
  1. PANTOPRAZOL [Suspect]
     Active Substance: PANTOPRAZOLE SODIUM
     Indication: REGURGITATION
     Dosage: 20 MILLIGRAM DAILY;
     Dates: start: 20191009, end: 20200129

REACTIONS (1)
  - Erectile dysfunction [Recovered/Resolved]
